FAERS Safety Report 17472055 (Version 1)
Quarter: 2020Q1

REPORT INFORMATION
  Report Type: Spontaneous
  Country: US (occurrence: US)
  Receive Date: 20200228
  Receipt Date: 20200228
  Transmission Date: 20200409
  Serious: Yes (Hospitalization, Other)
  Sender: FDA-Public Use
  Company Number: US-ACCORD-173966

PATIENT
  Age: 66 Year
  Sex: Male

DRUGS (1)
  1. FLUOROURACIL. [Suspect]
     Active Substance: FLUOROURACIL
     Indication: OESOPHAGEAL ADENOCARCINOMA STAGE IV
     Dosage: CONTINUOUS INFUSION

REACTIONS (6)
  - Ileal ulcer [Recovered/Resolved]
  - Odynophagia [Unknown]
  - Mucosal inflammation [Unknown]
  - Dysphagia [Unknown]
  - Crohn^s disease [Recovering/Resolving]
  - Small intestinal obstruction [Recovered/Resolved]
